FAERS Safety Report 4329775-7 (Version None)
Quarter: 2004Q1

REPORT INFORMATION
  Report Type: 
  Country: None (occurrence: None)
  Receive Date: 20040329
  Receipt Date: 20040113
  Transmission Date: 20041129
  Serious: No
  Sender: FDA-Public Use
  Company Number: RS004138-CDN

PATIENT
  Age: 58 Year
  Sex: Male

DRUGS (5)
  1. PARIET (RABEPRAZOLE) (RABEPRAZOLE SODIUM) [Suspect]
     Indication: DRUG USE FOR UNKNOWN INDICATION
     Dosage: 10 MG, 1 IN 1 D; ORAL
     Route: 048
  2. ALPRAZOLAM [Concomitant]
  3. APLACE (TROXIPIDE) [Concomitant]
  4. LIPIDIL SUPRA (FENOFIBRATE) [Concomitant]
  5. METOPROLOL [Concomitant]

REACTIONS (5)
  - CHILLS [None]
  - DYSPEPSIA [None]
  - FEELING COLD [None]
  - HYPERHIDROSIS [None]
  - TONGUE OEDEMA [None]
